FAERS Safety Report 7864978-6 (Version None)
Quarter: 2011Q4

REPORT INFORMATION
  Report Type: 
  Country: None (occurrence: None)
  Receive Date: 20111028
  Receipt Date: 20100927
  Transmission Date: 20120403
  Serious: No
  Sender: FDA-Public Use
  Company Number: US-GLAXOSMITHKLINE-A0883508A

PATIENT
  Sex: Female

DRUGS (8)
  1. VENTOLIN [Concomitant]
  2. SYNTHROID [Concomitant]
  3. ADVAIR DISKUS 100/50 [Suspect]
     Indication: ASTHMA
     Dosage: 1PUFF TWICE PER DAY
     Route: 055
  4. PRILOSEC [Concomitant]
  5. SINGULAIR [Concomitant]
  6. CLARITIN [Concomitant]
  7. QUINAPRIL [Concomitant]
  8. WELLBUTRIN [Concomitant]

REACTIONS (1)
  - OSTEOPENIA [None]
